FAERS Safety Report 6204049-8 (Version None)
Quarter: 2009Q2

REPORT INFORMATION
  Report Type: 
  Country: None (occurrence: None)
  Receive Date: 20090527
  Receipt Date: 20090519
  Transmission Date: 20091009
  Serious: Yes (Hospitalization, Other)
  Sender: FDA-Public Use
  Company Number: US-AVENTIS-200814642US

PATIENT
  Sex: Female
  Weight: 95.45 kg

DRUGS (12)
  1. KETEK [Suspect]
     Dates: start: 20070118
  2. KETEK [Suspect]
     Indication: PNEUMONIA
     Dates: start: 20070118
  3. OFLOXACIN [Suspect]
     Dosage: DOSE: UNK
  4. TYLENOL [Suspect]
     Dosage: DOSE: UNK
  5. OTC [Suspect]
     Dosage: DOSE: UNK
  6. ROCEPHIN [Concomitant]
     Route: 042
  7. LEVAQUIN [Concomitant]
     Dosage: DOSE: UNK
  8. FLAGYL [Concomitant]
     Dosage: DOSE: UNK
  9. ZOSYN [Concomitant]
     Dosage: DOSE: UNK
  10. MUCINEX [Concomitant]
     Dosage: DOSE: UNK
  11. DILAUDID [Concomitant]
     Dosage: DOSE: UNK
  12. MOTRIN [Concomitant]
     Dosage: DOSE: UNK

REACTIONS (33)
  - ABDOMINAL DISTENSION [None]
  - ABDOMINAL PAIN UPPER [None]
  - ANOREXIA [None]
  - ASTHENIA [None]
  - BLOOD ALKALINE PHOSPHATASE INCREASED [None]
  - BLOOD BILIRUBIN INCREASED [None]
  - CHROMATURIA [None]
  - DEHYDRATION [None]
  - DIARRHOEA [None]
  - DIZZINESS [None]
  - DRUG INEFFECTIVE [None]
  - DYSPNOEA [None]
  - EOSINOPHILIA [None]
  - FALL [None]
  - GAIT DISTURBANCE [None]
  - GASTROINTESTINAL DISORDER [None]
  - HEPATITIS [None]
  - HEPATOMEGALY [None]
  - HYPOALBUMINAEMIA [None]
  - INSOMNIA [None]
  - JAUNDICE [None]
  - LETHARGY [None]
  - LIVER FUNCTION TEST ABNORMAL [None]
  - NAUSEA [None]
  - OCULAR ICTERUS [None]
  - OEDEMA PERIPHERAL [None]
  - PAIN [None]
  - PYREXIA [None]
  - SPEECH DISORDER [None]
  - SYNCOPE [None]
  - URINARY TRACT INFECTION [None]
  - VISION BLURRED [None]
  - VOMITING [None]
